FAERS Safety Report 24380025 (Version 3)
Quarter: 2024Q4

REPORT INFORMATION
  Report Type: Report from Study
  Country: US (occurrence: US)
  Receive Date: 20240930
  Receipt Date: 20241210
  Transmission Date: 20250115
  Serious: No
  Sender: SUNOVION
  Company Number: US-SMPA-2024SPA002644AA

PATIENT

DRUGS (4)
  1. ORGOVYX [Suspect]
     Active Substance: RELUGOLIX
     Indication: Prostate cancer
     Dosage: 360 MG, SINGLE (TAKEN WITH MDO SAMPLES)
     Route: 048
     Dates: start: 20231207, end: 20231207
  2. ORGOVYX [Suspect]
     Active Substance: RELUGOLIX
     Dosage: 120 MG, QD (TAKEN WITH MDO SAMPLES)
     Route: 048
     Dates: start: 20231208
  3. ORGOVYX [Suspect]
     Active Substance: RELUGOLIX
     Dosage: 120 MG, QD STARTED WITH BIOLOGICS
     Route: 048
     Dates: start: 20240207
  4. XTANDI [Concomitant]
     Active Substance: ENZALUTAMIDE
     Indication: Prostate cancer
     Dosage: 160 MG, QD
     Route: 065
     Dates: start: 20240215

REACTIONS (8)
  - Chills [Unknown]
  - Dry skin [Unknown]
  - Pain [Unknown]
  - Dry eye [Unknown]
  - Nasal dryness [Unknown]
  - Blood pressure increased [Unknown]
  - Osteoporosis [Unknown]
  - Hot flush [Unknown]
